FAERS Safety Report 18313014 (Version 1)
Quarter: 2020Q3

REPORT INFORMATION
  Report Type: Spontaneous
  Country: US (occurrence: US)
  Receive Date: 20200925
  Receipt Date: 20200925
  Transmission Date: 20201103
  Serious: Yes (Death)
  Sender: FDA-Public Use
  Company Number: None

PATIENT
  Age: 49 Year
  Sex: Male

DRUGS (9)
  1. OMEPRAZOLE. [Concomitant]
     Active Substance: OMEPRAZOLE
  2. LEVOTHYROXIN [Concomitant]
     Active Substance: LEVOTHYROXINE
  3. MELOXICAM. [Concomitant]
     Active Substance: MELOXICAM
  4. GABAPENTIN. [Concomitant]
     Active Substance: GABAPENTIN
  5. TEMOZOLOMIDE. [Suspect]
     Active Substance: TEMOZOLOMIDE
     Indication: PRODUCT USED FOR UNKNOWN INDICATION
     Dosage: ?          OTHER FREQUENCY:D FOR 21D + 7D OFF;?
     Route: 048
  6. BENZONATATE. [Concomitant]
     Active Substance: BENZONATATE
  7. NEULASTA [Concomitant]
     Active Substance: PEGFILGRASTIM
  8. HYCAMTIN [Concomitant]
     Active Substance: TOPOTECAN HYDROCHLORIDE
  9. METHOCARBAM [Concomitant]
     Active Substance: METHOCARBAMOL

REACTIONS (1)
  - Death [None]
